FAERS Safety Report 5793542-8 (Version None)
Quarter: 2008Q2

REPORT INFORMATION
  Report Type: 
  Country: None (occurrence: None)
  Receive Date: 20080627
  Receipt Date: 20080625
  Transmission Date: 20081010
  Serious: Yes (Death, Hospitalization, Other)
  Sender: FDA-Public Use
  Company Number: PHBS2007JP04630

PATIENT
  Sex: Female
  Weight: 33 kg

DRUGS (10)
  1. ZOMETA [Suspect]
     Indication: MULTIPLE MYELOMA
     Dosage: UNK, UNK
     Route: 042
     Dates: start: 20060909, end: 20070206
  2. AREDIA [Suspect]
     Dosage: UNK
     Route: 042
     Dates: start: 20040204, end: 20060801
  3. CETAPRIL [Concomitant]
     Dosage: 50MG
     Route: 048
  4. ADALAT [Concomitant]
     Dosage: 40MG
     Route: 048
  5. ALFAROL [Concomitant]
     Dosage: 0.5UG
     Route: 048
  6. MARZULENE [Concomitant]
     Route: 048
  7. FAMOTIDINE [Concomitant]
     Route: 048
  8. PENFILL R [Concomitant]
     Route: 058
  9. ALKERAN [Concomitant]
     Route: 048
  10. PREDNISOLONE [Concomitant]
     Route: 048

REACTIONS (12)
  - ABSCESS ORAL [None]
  - BONE DISORDER [None]
  - DEPRESSED LEVEL OF CONSCIOUSNESS [None]
  - LIP EROSION [None]
  - LOCAL SWELLING [None]
  - MALIGNANT NEOPLASM PROGRESSION [None]
  - ORAL PAIN [None]
  - OSTEOMYELITIS [None]
  - OSTEONECROSIS [None]
  - PAIN IN JAW [None]
  - PRIMARY SEQUESTRUM [None]
  - PURULENT DISCHARGE [None]
